FAERS Safety Report 6385166-9 (Version None)
Quarter: 2009Q4

REPORT INFORMATION
  Report Type: 
  Country: None (occurrence: None)
  Receive Date: 20091002
  Receipt Date: 20090424
  Transmission Date: 20100525
  Serious: No
  Sender: FDA-Public Use
  Company Number: US-ASTRAZENECA-2007UW12110

PATIENT
  Age: 50 Year
  Sex: Female
  Weight: 44.5 kg

DRUGS (2)
  1. ARIMIDEX [Suspect]
     Indication: BREAST CANCER
     Route: 048
  2. VENLAFAXINE [Concomitant]
     Indication: DEPRESSION

REACTIONS (4)
  - BACK INJURY [None]
  - MUSCLE SPASMS [None]
  - MUSCLE STRAIN [None]
  - MUSCULAR WEAKNESS [None]
